FAERS Safety Report 13975981 (Version 1)
Quarter: 2017Q3

REPORT INFORMATION
  Report Type: Report from Study
  Country: US (occurrence: US)
  Receive Date: 20170915
  Receipt Date: 20170915
  Transmission Date: 20171128
  Serious: Yes (Hospitalization, Other)
  Sender: FDA-Public Use
  Company Number: US-GILEAD-2017-0293424

PATIENT
  Age: 75 Year
  Sex: Female

DRUGS (21)
  1. SUCRALFATE. [Concomitant]
     Active Substance: SUCRALFATE
  2. TAMIFLU [Concomitant]
     Active Substance: OSELTAMIVIR PHOSPHATE
  3. ERYTHROMYCIN. [Concomitant]
     Active Substance: ERYTHROMYCIN
  4. PANTOPRAZOLE [Concomitant]
     Active Substance: PANTOPRAZOLE
  5. CLOBETASOL [Concomitant]
     Active Substance: CLOBETASOL
  6. KCL [Concomitant]
     Active Substance: POTASSIUM CHLORIDE
  7. NEXIUM [Concomitant]
     Active Substance: ESOMEPRAZOLE MAGNESIUM
  8. CARTIA                             /00002701/ [Concomitant]
     Active Substance: ASPIRIN
  9. AMBRISENTAN [Suspect]
     Active Substance: AMBRISENTAN
     Indication: PULMONARY ARTERIAL HYPERTENSION
     Dosage: 5 MG, QD
     Route: 065
     Dates: start: 20100719
  10. METOPROLOL. [Concomitant]
     Active Substance: METOPROLOL
  11. WARFARIN [Concomitant]
     Active Substance: WARFARIN
  12. HUMULIN R [Concomitant]
     Active Substance: INSULIN HUMAN
  13. LISINOPRIL. [Concomitant]
     Active Substance: LISINOPRIL
  14. AMOXICILLIN + CLAV. POTASSIUM [Concomitant]
     Active Substance: AMOXICILLIN\CLAVULANATE POTASSIUM
  15. ASA [Concomitant]
     Active Substance: ASPIRIN
  16. ADVAIR HFA [Concomitant]
     Active Substance: FLUTICASONE PROPIONATE\SALMETEROL XINAFOATE
  17. HUMULIN N [Concomitant]
     Active Substance: INSULIN HUMAN
  18. FLUCONAZOLE. [Concomitant]
     Active Substance: FLUCONAZOLE
  19. SOTALOL. [Concomitant]
     Active Substance: SOTALOL
  20. OMEPRAZOLE. [Concomitant]
     Active Substance: OMEPRAZOLE
  21. FAMOTIDINE. [Concomitant]
     Active Substance: FAMOTIDINE

REACTIONS (1)
  - Cerebrovascular accident [Not Recovered/Not Resolved]

NARRATIVE: CASE EVENT DATE: 20170826
